FAERS Safety Report 4346577-6 (Version None)
Quarter: 2004Q1

REPORT INFORMATION
  Report Type: 
  Country: None (occurrence: None)
  Receive Date: 20040325
  Receipt Date: 20031222
  Transmission Date: 20041129
  Serious: No
  Sender: FDA-Public Use
  Company Number: USA031255287

PATIENT
  Sex: Female
  Weight: 43 kg

DRUGS (5)
  1. FORTEO [Suspect]
     Indication: OSTEOPOROSIS
     Dates: start: 20031208
  2. ZANTAC [Concomitant]
  3. VENTOLIN INHALER (SALBUTAMOL) [Concomitant]
  4. VITAMIN D [Concomitant]
  5. MULTI-VITAMINS [Concomitant]

REACTIONS (2)
  - ABDOMINAL DISTENSION [None]
  - INJECTION SITE HAEMORRHAGE [None]
